FAERS Safety Report 5792362-8 (Version None)
Quarter: 2008Q2

REPORT INFORMATION
  Report Type: 
  Country: None (occurrence: None)
  Receive Date: 20080623
  Receipt Date: 20080613
  Transmission Date: 20081010
  Serious: Yes (Hospitalization, Other)
  Sender: FDA-Public Use
  Company Number: 2008SP011795

PATIENT
  Age: 71 Year
  Sex: Male

DRUGS (3)
  1. TEMODAL [Suspect]
     Indication: GLIOBLASTOMA
     Dosage: 140 MG; QD; PO
     Route: 048
     Dates: start: 20080512, end: 20080527
  2. VALPROIC ACID [Suspect]
     Indication: EPILEPSY
     Dosage: 600 MG; BID;
     Dates: start: 20080328, end: 20080529
  3. FORTECORTIN [Concomitant]

REACTIONS (3)
  - CHOLESTASIS [None]
  - HEPATOTOXICITY [None]
  - LIVER INJURY [None]
